FAERS Safety Report 20298342 (Version 1)
Quarter: 2022Q1

REPORT INFORMATION
  Report Type: Spontaneous
  Country: GB (occurrence: GB)
  Receive Date: 20220105
  Receipt Date: 20220105
  Transmission Date: 20220424
  Serious: Yes (Life-Threatening)
  Sender: FDA-Public Use
  Company Number: None

PATIENT
  Age: 28 Year
  Sex: Female
  Weight: 104.32 kg

DRUGS (2)
  1. INVEGA [Suspect]
     Active Substance: PALIPERIDONE
     Indication: Schizophrenia
     Dosage: 9MG
     Route: 048
     Dates: start: 20200303, end: 20201201
  2. ZUCLOPENTHIXOL ACETATE [Concomitant]
     Active Substance: ZUCLOPENTHIXOL ACETATE
     Indication: Ill-defined disorder
     Route: 065

REACTIONS (3)
  - Anion gap increased [Unknown]
  - Medication error [Unknown]
  - Hallucination [Unknown]

NARRATIVE: CASE EVENT DATE: 20200805
